FAERS Safety Report 8056197-8 (Version None)
Quarter: 2011Q4

REPORT INFORMATION
  Report Type: 
  Country: None (occurrence: None)
  Receive Date: 20111219
  Receipt Date: 20110617
  Transmission Date: 20120403
  Serious: Yes (Hospitalization)
  Sender: FDA-Public Use
  Company Number: WAES 1106USA02508

PATIENT
  Age: 48 Year
  Sex: Male

DRUGS (5)
  1. ZAROXOLYN [Concomitant]
  2. LANTUS [Concomitant]
  3. GLIMEPIRIDE [Concomitant]
  4. CRESTOR [Concomitant]
  5. JANUVIA [Suspect]
     Dosage: 100 MG/DAILY/PO
     Route: 048
     Dates: start: 20110501

REACTIONS (1)
  - PANCREATITIS [None]
